FAERS Safety Report 7788126-6 (Version None)
Quarter: 2011Q3

REPORT INFORMATION
  Report Type: 
  Country: None (occurrence: None)
  Receive Date: 20110927
  Receipt Date: 20110921
  Transmission Date: 20111222
  Serious: Yes (Other)
  Sender: FDA-Public Use
  Company Number: 2011SP003181

PATIENT
  Sex: Female

DRUGS (1)
  1. LUNESTA [Suspect]

REACTIONS (2)
  - HEPATIC CIRRHOSIS [None]
  - CONFUSIONAL STATE [None]
